FAERS Safety Report 12410848 (Version 2)
Quarter: 2016Q2

REPORT INFORMATION
  Report Type: Spontaneous
  Country: ES (occurrence: ES)
  Receive Date: 20160527
  Receipt Date: 20160530
  Transmission Date: 20160815
  Serious: Yes (Life-Threatening, Hospitalization)
  Sender: FDA-Public Use
  Company Number: ES-AMGEN-ESPSP2016066596

PATIENT
  Age: 71 Year
  Sex: Male
  Weight: 55 kg

DRUGS (1)
  1. ENBREL [Suspect]
     Active Substance: ETANERCEPT
     Indication: ANKYLOSING SPONDYLITIS
     Dosage: 50 MG,  PRE FILLED SYRINGE EVERY 10 DAYS
     Route: 058
     Dates: start: 20090715

REACTIONS (1)
  - Small cell lung cancer extensive stage [Unknown]

NARRATIVE: CASE EVENT DATE: 20160425
